FAERS Safety Report 9348055 (Version 1)
Quarter: 2013Q2

REPORT INFORMATION
  Report Type: Report from Study
  Country: CA (occurrence: CA)
  Receive Date: 20130614
  Receipt Date: 20130614
  Transmission Date: 20140414
  Serious: Yes (Life-Threatening, Other)
  Sender: FDA-Public Use
  Company Number: CA-JNJFOC-20130604944

PATIENT
  Age: 37 Year
  Sex: Female
  Weight: 132.9 kg

DRUGS (3)
  1. REMICADE [Suspect]
     Indication: CROHN^S DISEASE
     Route: 042
     Dates: start: 201201
  2. IMURAN [Concomitant]
     Route: 048
  3. CIPRO [Concomitant]
     Route: 048

REACTIONS (4)
  - Arthralgia [Unknown]
  - Mass [Unknown]
  - Pain [Unknown]
  - Pruritus [Unknown]
